FAERS Safety Report 7741973-9 (Version None)
Quarter: 2011Q3

REPORT INFORMATION
  Report Type: 
  Country: None (occurrence: None)
  Receive Date: 20110831
  Receipt Date: 20110826
  Transmission Date: 20111222
  Serious: Yes (Death)
  Sender: FDA-Public Use
  Company Number: 2011SP039628

PATIENT
  Age: 1 Day

DRUGS (1)
  1. IMPLANON [Suspect]
     Indication: MATERNAL EXPOSURE DURING PREGNANCY
     Dosage: 1 DF. TRPL
     Route: 064

REACTIONS (2)
  - STILLBIRTH [None]
  - MATERNAL DRUGS AFFECTING FOETUS [None]
